FAERS Safety Report 12313589 (Version 1)
Quarter: 2016Q2

REPORT INFORMATION
  Report Type: Spontaneous
  Country: US (occurrence: None)
  Receive Date: 20160427
  Receipt Date: 20160427
  Transmission Date: 20160815
  Serious: Yes (Other)
  Sender: FDA-Public Use
  Company Number: None

PATIENT
  Age: 73 Year
  Sex: Female
  Weight: 58.06 kg

DRUGS (18)
  1. AMOX-CLAV 500MG TABLETS TEVA [Suspect]
     Active Substance: AMOXICILLIN\CLAVULANATE POTASSIUM
     Indication: LOCALISED INFECTION
     Dates: start: 20151219, end: 20151230
  2. SPIRONOLACTONE. [Concomitant]
     Active Substance: SPIRONOLACTONE
  3. DIGOXIN. [Concomitant]
     Active Substance: DIGOXIN
  4. CARAFATE [Concomitant]
     Active Substance: SUCRALFATE
  5. METFORMIN [Concomitant]
     Active Substance: METFORMIN HYDROCHLORIDE
  6. ADCIRCA [Concomitant]
     Active Substance: TADALAFIL
  7. LASIX [Concomitant]
     Active Substance: FUROSEMIDE
  8. DILTIAZEN [Concomitant]
     Active Substance: DILTIAZEM
  9. ARIMIDEX [Concomitant]
     Active Substance: ANASTROZOLE
  10. C DIF TOX A+A 5TL [Concomitant]
  11. CALCIUM 500 [Concomitant]
  12. PRAVASTATIN [Concomitant]
     Active Substance: PRAVASTATIN\PRAVASTATIN SODIUM
  13. WARFARIN [Concomitant]
     Active Substance: WARFARIN
  14. ATENOLOL. [Concomitant]
     Active Substance: ATENOLOL
  15. C-PAP MACHINE [Concomitant]
     Active Substance: DEVICE
  16. AMBIEN [Concomitant]
     Active Substance: ZOLPIDEM TARTRATE
  17. CALCIUM 500 TD [Concomitant]
  18. OMEPRAZOLE. [Concomitant]
     Active Substance: OMEPRAZOLE

REACTIONS (6)
  - Product coating issue [None]
  - Product physical issue [None]
  - Food intolerance [None]
  - Abdominal distension [None]
  - Diarrhoea [None]
  - Abdominal pain upper [None]

NARRATIVE: CASE EVENT DATE: 20151230
